FAERS Safety Report 4828807-7 (Version None)
Quarter: 2005Q4

REPORT INFORMATION
  Report Type: 
  Country: None (occurrence: None)
  Receive Date: 20051014
  Receipt Date: 20050621
  Transmission Date: 20060501
  Serious: No
  Sender: FDA-Public Use
  Company Number: 2005SP001319

PATIENT
  Age: 73 Year
  Sex: Female
  Weight: 63.5036 kg

DRUGS (5)
  1. LUNESTA [Suspect]
     Indication: SLEEP DISORDER
     Dosage: 2 MG; HS; ORAL
     Route: 048
     Dates: start: 20050526, end: 20050526
  2. LUNESTA [Suspect]
     Indication: SLEEP DISORDER
     Dosage: 2 MG; HS; ORAL
     Route: 048
     Dates: start: 20050528, end: 20050528
  3. LIPITOR [Concomitant]
  4. ATENOLOL [Concomitant]
  5. DIOVAN [Concomitant]

REACTIONS (4)
  - DRUG INEFFECTIVE [None]
  - DYSGEUSIA [None]
  - HALLUCINATION [None]
  - INSOMNIA [None]
